FAERS Safety Report 5348827-6 (Version None)
Quarter: 2007Q2

REPORT INFORMATION
  Report Type: 
  Country: None (occurrence: None)
  Receive Date: 20070607
  Receipt Date: 20070601
  Transmission Date: 20071010
  Serious: Yes (Life-Threatening)
  Sender: FDA-Public Use
  Company Number: FR-BRACCO-BRO-011738

PATIENT
  Sex: Male

DRUGS (2)
  1. PROHANCE [Suspect]
     Route: 042
     Dates: start: 20070526, end: 20070526
  2. PROHANCE [Suspect]
     Indication: NUCLEAR MAGNETIC RESONANCE IMAGING BRAIN
     Route: 042
     Dates: start: 20070526, end: 20070526

REACTIONS (9)
  - ANAPHYLACTIC SHOCK [None]
  - CEREBRAL ISCHAEMIA [None]
  - CEREBROVASCULAR ACCIDENT [None]
  - DIALYSIS [None]
  - GENERALISED ERYTHEMA [None]
  - INTESTINAL ISCHAEMIA [None]
  - LACTIC ACIDOSIS [None]
  - RESPIRATORY DISORDER [None]
  - VOMITING [None]
